FAERS Safety Report 9202033 (Version 5)
Quarter: 2013Q3

REPORT INFORMATION
  Report Type: Spontaneous
  Country: US (occurrence: US)
  Receive Date: 20130401
  Receipt Date: 20130719
  Transmission Date: 20140515
  Serious: Yes (Other)
  Sender: FDA-Public Use
  Company Number: US-PFIZER INC-2013100484

PATIENT
  Age: 92 Year
  Sex: Female

DRUGS (11)
  1. LITHIUM [Suspect]
     Dosage: 300 MG, DAILY
  2. NORTRIPTYLINE [Suspect]
     Dosage: 50 MG DAILY
  3. ASPIRIN [Suspect]
     Dosage: 325 MG, ALTERNATE DAY
  4. DONEPEZIL [Concomitant]
     Indication: DEMENTIA
     Dosage: 10 MG, DAILY
  5. LOVASTATIN [Concomitant]
     Indication: BLOOD CHOLESTEROL INCREASED
     Dosage: 20 MG, UNK
  6. ARICEPT [Concomitant]
     Dosage: 10 MG DAILY
  7. NAMENDA [Concomitant]
     Indication: DEMENTIA
     Dosage: 10 MG, 2X/DAY
  8. TOVIAZ [Suspect]
     Indication: URINARY INCONTINENCE
     Dosage: 4 MG, UNK
     Route: 048
     Dates: start: 201210, end: 201211
  9. ZOLOFT [Suspect]
     Indication: DEPRESSION
     Dosage: 50 MG DAILY
  10. AMLODIPINE BESILATE [Suspect]
     Dosage: 2.5 MG DAILY
  11. VESICARE [Suspect]
     Dosage: UNKNOWN DOSE DAILY

REACTIONS (2)
  - Dementia [Recovered/Resolved]
  - Drug ineffective [Unknown]
